FAERS Safety Report 13824935 (Version 1)
Quarter: 2017Q3

REPORT INFORMATION
  Report Type: Spontaneous
  Country: US (occurrence: BR)
  Receive Date: 20170802
  Receipt Date: 20170802
  Transmission Date: 20171127
  Serious: Yes (Other)
  Sender: FDA-Public Use
  Company Number: US-SUNOVION-2017SUN003418

PATIENT
  Age: 67 Year
  Sex: Female
  Weight: 68 kg

DRUGS (4)
  1. INDACATEROL [Suspect]
     Active Substance: INDACATEROL
     Dosage: UNK
     Route: 048
     Dates: start: 20170724
  2. PANTOPRAZOLE [Concomitant]
     Active Substance: PANTOPRAZOLE
     Dosage: UNK
  3. INDACATEROL [Suspect]
     Active Substance: INDACATEROL
     Dosage: UNK
     Route: 055
     Dates: start: 20170724
  4. INDACATEROL [Suspect]
     Active Substance: INDACATEROL
     Indication: EMPHYSEMA
     Dosage: 1 DF, QD (1 CAPSULE IN THE MORNING)
     Route: 055
     Dates: start: 2008

REACTIONS (4)
  - Neoplasm malignant [Unknown]
  - Wrong drug administered [Unknown]
  - Weight decreased [Unknown]
  - Incorrect route of drug administration [Unknown]

NARRATIVE: CASE EVENT DATE: 20170724
